FAERS Safety Report 9101388 (Version 1)
Quarter: 2013Q1

REPORT INFORMATION
  Report Type: Report from Study
  Country: US (occurrence: US)
  Receive Date: 20130218
  Receipt Date: 20130218
  Transmission Date: 20140127
  Serious: No
  Sender: FDA-Public Use
  Company Number: US-ABBOTT-12P-163-0980957-00

PATIENT
  Sex: Female

DRUGS (6)
  1. SIMCOR 1000MG/40MG [Suspect]
     Indication: BLOOD CHOLESTEROL INCREASED
     Dosage: 1000MG/40MG DOSE AT BEDTIME
     Dates: start: 2010
  2. SIMCOR 1000MG/40MG [Suspect]
     Indication: BLOOD TRIGLYCERIDES INCREASED
  3. ASA [Concomitant]
     Indication: PRODUCT USED FOR UNKNOWN INDICATION
     Dosage: HALF HOUR BEFORE THE SIMCOR
  4. VITAMIN D [Concomitant]
     Indication: PRODUCT USED FOR UNKNOWN INDICATION
  5. UNKNOWN OTC SUPPLEMENTS [Concomitant]
     Indication: PRODUCT USED FOR UNKNOWN INDICATION
  6. UNKNOWN MEDICATION THAT STARTS WITH K [Concomitant]
     Indication: GLUCOSE TOLERANCE IMPAIRED

REACTIONS (4)
  - Flushing [Not Recovered/Not Resolved]
  - Glucose tolerance impaired [Unknown]
  - Feeling hot [Unknown]
  - Paraesthesia [Unknown]
